FAERS Safety Report 18691254 (Version 2)
Quarter: 2021Q1

REPORT INFORMATION
  Report Type: Spontaneous
  Country: US (occurrence: US)
  Receive Date: 20210101
  Receipt Date: 20210126
  Transmission Date: 20210419
  Serious: Yes (Other)
  Sender: FDA-Public Use
  Company Number: US-LUPIN PHARMACEUTICALS INC.-2020-10968

PATIENT
  Sex: Male
  Weight: 83.91 kg

DRUGS (1)
  1. DESOXIMETASONE CREAM USP, 0.05% [Suspect]
     Active Substance: DESOXIMETASONE
     Indication: FUNGAL INFECTION
     Dosage: UNK UNK, BID
     Route: 065

REACTIONS (3)
  - Skin burning sensation [Unknown]
  - Hypersensitivity [Recovered/Resolved]
  - Skin exfoliation [Recovered/Resolved]
